FAERS Safety Report 17794816 (Version 3)
Quarter: 2020Q2

REPORT INFORMATION
  Report Type: Spontaneous
  Country: US (occurrence: US)
  Receive Date: 20200515
  Receipt Date: 20200622
  Transmission Date: 20200714
  Serious: No
  Sender: FDA-Public Use
  Company Number: US-ASTRAZENECA-2020SE61369

PATIENT
  Sex: Male

DRUGS (2)
  1. BYDUREON BCISE [Suspect]
     Active Substance: EXENATIDE
     Indication: TYPE 2 DIABETES MELLITUS
     Route: 058
     Dates: start: 201805
  2. BYDUREON [Concomitant]
     Active Substance: EXENATIDE
     Route: 058
     Dates: start: 201802, end: 201805

REACTIONS (6)
  - Incorrect dose administered by device [Unknown]
  - Injection site haemorrhage [Unknown]
  - Needle issue [Unknown]
  - Device issue [Unknown]
  - Wrong technique in device usage process [Unknown]
  - Injection site extravasation [Unknown]
